FAERS Safety Report 7458827-8 (Version None)
Quarter: 2011Q2

REPORT INFORMATION
  Report Type: 
  Country: None (occurrence: None)
  Receive Date: 20110504
  Receipt Date: 20110429
  Transmission Date: 20111010
  Serious: Yes (Death, Hospitalization)
  Sender: FDA-Public Use
  Company Number: CH-ROCHE-769145

PATIENT
  Sex: Male
  Weight: 77.5 kg

DRUGS (3)
  1. TELAPREVIR [Suspect]
     Route: 048
     Dates: start: 20101201, end: 20110222
  2. PEGINTERFERON ALFA-2A [Suspect]
     Route: 058
     Dates: start: 20101201, end: 20110406
  3. RIBAVIRIN [Suspect]
     Dosage: FREQUENCY: 3-0-3
     Route: 048
     Dates: start: 20101201, end: 20110412

REACTIONS (13)
  - MULTI-ORGAN FAILURE [None]
  - ERYSIPELAS [None]
  - MUSCULOSKELETAL PAIN [None]
  - CLOSTRIDIAL INFECTION [None]
  - LYMPHADENITIS [None]
  - PRURITUS [None]
  - STAPHYLOCOCCAL SEPSIS [None]
  - INFECTION [None]
  - ABSCESS [None]
  - ACUTE HEPATIC FAILURE [None]
  - RASH [None]
  - ACUTE RESPIRATORY DISTRESS SYNDROME [None]
  - RENAL FAILURE ACUTE [None]
